FAERS Safety Report 9403677 (Version 2)
Quarter: 2013Q3

REPORT INFORMATION
  Report Type: Report from Study
  Country: CN (occurrence: CN)
  Receive Date: 20130717
  Receipt Date: 20130923
  Transmission Date: 20140515
  Serious: Yes (Other)
  Sender: FDA-Public Use
  Company Number: CN-ROCHE-1249322

PATIENT
  Age: 50 Year
  Sex: Female

DRUGS (3)
  1. PEGASYS [Suspect]
     Indication: HEPATITIS C
     Route: 058
     Dates: start: 20130401, end: 201309
  2. PEGASYS [Suspect]
     Route: 058
     Dates: start: 201309
  3. RIBAVIRIN [Concomitant]
     Indication: HEPATITIS C
     Route: 048
     Dates: start: 20130401, end: 201308

REACTIONS (3)
  - White blood cell count decreased [Unknown]
  - Cough [Not Recovered/Not Resolved]
  - Chest discomfort [Recovering/Resolving]
